FAERS Safety Report 6881527-X (Version None)
Quarter: 2010Q3

REPORT INFORMATION
  Report Type: 
  Country: None (occurrence: None)
  Receive Date: 20100729
  Receipt Date: 20100720
  Transmission Date: 20110219
  Serious: Yes (Hospitalization)
  Sender: FDA-Public Use
  Company Number: US-BIOGENIDEC-2010BI022396

PATIENT
  Age: 52 Year
  Sex: Female

DRUGS (5)
  1. AVONEX [Suspect]
     Indication: MULTIPLE SCLEROSIS
     Route: 030
     Dates: start: 19950101, end: 20030101
  2. AVONEX [Suspect]
     Route: 030
     Dates: end: 20050301
  3. NOVANTRONE [Concomitant]
  4. CHEMOTHERAPY [Concomitant]
  5. UNKNOWN STEROID [Concomitant]

REACTIONS (8)
  - BIPOLAR DISORDER [None]
  - CONFUSIONAL STATE [None]
  - DEPRESSION [None]
  - DRUG ERUPTION [None]
  - ESCHERICHIA INFECTION [None]
  - HYPOTHYROIDISM [None]
  - INFLUENZA LIKE ILLNESS [None]
  - SALMONELLOSIS [None]
